FAERS Safety Report 16914165 (Version 1)
Quarter: 2019Q4

REPORT INFORMATION
  Report Type: Spontaneous
  Country: HU (occurrence: HU)
  Receive Date: 20191014
  Receipt Date: 20191014
  Transmission Date: 20200122
  Serious: Yes (Other)
  Sender: FDA-Public Use
  Company Number: HU-PFIZER INC-2019433453

PATIENT
  Age: 73 Year
  Sex: Female

DRUGS (11)
  1. TENAXUM [Concomitant]
     Active Substance: RILMENIDINE
     Dosage: UNK
     Route: 065
  2. FRONTIN [Concomitant]
     Active Substance: ALPRAZOLAM
     Indication: PRODUCT USED FOR UNKNOWN INDICATION
     Dosage: UNK
     Route: 065
  3. IMATINIB. [Suspect]
     Active Substance: IMATINIB MESYLATE
     Dosage: 200 MG, QD
     Route: 065
  4. NITRODERM [Suspect]
     Active Substance: NITROGLYCERIN
     Dosage: UNK
     Route: 065
  5. THIOGAMMA [Concomitant]
     Active Substance: .ALPHA.-LIPOIC ACID
     Dosage: UNK
     Route: 065
  6. IMATINIB. [Suspect]
     Active Substance: IMATINIB MESYLATE
     Dosage: 400 MG, QD
     Route: 065
  7. EUCREAS [Suspect]
     Active Substance: METFORMIN HYDROCHLORIDE\VILDAGLIPTIN
     Dosage: UNK
     Route: 065
  8. MILURIT [Concomitant]
     Active Substance: ALLOPURINOL
     Dosage: UNK
     Route: 065
  9. VALSARTAN + HCT [Suspect]
     Active Substance: HYDROCHLOROTHIAZIDE\VALSARTAN
     Dosage: UNK
     Route: 065
  10. MARFARIN [Concomitant]
     Active Substance: WARFARIN
     Dosage: UNK
     Route: 065
  11. AMLODIPINE BESILATE [Suspect]
     Active Substance: AMLODIPINE BESYLATE
     Dosage: UNK
     Route: 065

REACTIONS (9)
  - Anaemia [Unknown]
  - Diabetes mellitus [Unknown]
  - Leukopenia [Unknown]
  - Eyelid oedema [Unknown]
  - Chronic obstructive pulmonary disease [Unknown]
  - Chronic myeloid leukaemia [Unknown]
  - Hypertension [Unknown]
  - Nausea [Unknown]
  - Atrial fibrillation [Unknown]
